FAERS Safety Report 17774458 (Version 1)
Quarter: 2020Q2

REPORT INFORMATION
  Report Type: Spontaneous
  Country: US (occurrence: US)
  Receive Date: 20200513
  Receipt Date: 20200513
  Transmission Date: 20200714
  Serious: No
  Sender: FDA-Public Use
  Company Number: US-TEVA-2020-US-1234733

PATIENT
  Sex: Female

DRUGS (1)
  1. RISEDRONATE SODIUM TEVA [Suspect]
     Active Substance: RISEDRONATE SODIUM
     Route: 048
     Dates: start: 20200201

REACTIONS (2)
  - Diarrhoea [Recovered/Resolved]
  - Toxicity to various agents [Unknown]
